FAERS Safety Report 25882813 (Version 1)
Quarter: 2025Q4

REPORT INFORMATION
  Report Type: Spontaneous
  Country: US (occurrence: US)
  Receive Date: 20251006
  Receipt Date: 20251006
  Transmission Date: 20260118
  Serious: Yes (Death, Life-Threatening, Hospitalization, Other)
  Sender: CIPLA
  Company Number: US-MLMSERVICE-20250905-PI635712-00043-1

PATIENT

DRUGS (11)
  1. AMLODIPINE [Interacting]
     Active Substance: AMLODIPINE BESYLATE
     Indication: Product used for unknown indication
     Dosage: UNK
     Route: 065
  2. BUPROPION [Interacting]
     Active Substance: BUPROPION
     Indication: Product used for unknown indication
     Dosage: UNK
     Route: 065
  3. METOPROLOL [Interacting]
     Active Substance: METOPROLOL
     Indication: Product used for unknown indication
     Dosage: UNK
     Route: 065
  4. ALLOPURINOL [Interacting]
     Active Substance: ALLOPURINOL
     Indication: Gout
     Dosage: 50 MILLIGRAM, QD
     Route: 065
  5. COLCHICINE [Interacting]
     Active Substance: COLCHICINE
     Indication: Gout
     Dosage: 0.6 MILLIGRAM, QD
     Route: 065
  6. HYDROCHLOROTHIAZIDE [Interacting]
     Active Substance: HYDROCHLOROTHIAZIDE
     Indication: Product used for unknown indication
     Dosage: UNK
     Route: 065
  7. METFORMIN [Interacting]
     Active Substance: METFORMIN HYDROCHLORIDE
     Indication: Product used for unknown indication
     Dosage: UNK
     Route: 065
  8. ALBUTEROL [Concomitant]
     Active Substance: ALBUTEROL
     Indication: Product used for unknown indication
     Dosage: PRN (AS NECESSARY)
     Route: 065
  9. PREDNISONE [Concomitant]
     Active Substance: PREDNISONE
     Indication: Gout
     Dosage: 50 MILLIGRAM, QD (DAILY FOR FIVE DAYS)
     Route: 065
  10. PREDNISONE [Concomitant]
     Active Substance: PREDNISONE
     Dosage: 40 MILLIGRAM, QD (DAILY FOR SEVEN DAYS)
     Route: 065
  11. AZITHROMYCIN [Concomitant]
     Active Substance: AZITHROMYCIN
     Indication: Dyspnoea
     Dosage: UNK
     Route: 065

REACTIONS (11)
  - Acute hepatic failure [Fatal]
  - Multiple organ dysfunction syndrome [Fatal]
  - Drug interaction [Fatal]
  - Hepatic failure [Unknown]
  - Drug-induced liver injury [Unknown]
  - Ascites [Unknown]
  - Cholecystitis [Unknown]
  - Biliary dilatation [Unknown]
  - Renal failure [Unknown]
  - Metabolic acidosis [Unknown]
  - Pancreatitis [Unknown]
